FAERS Safety Report 9790584 (Version 3)
Quarter: 2014Q1

REPORT INFORMATION
  Report Type: Spontaneous
  Country: US (occurrence: US)
  Receive Date: 20131231
  Receipt Date: 20140313
  Transmission Date: 20141002
  Serious: Yes (Other)
  Sender: FDA-Public Use
  Company Number: US-MYLANLABS-2013S1028972

PATIENT
  Age: 36 Year
  Sex: Male

DRUGS (1)
  1. DIVALPROEX SODIUM EXTENDED-RELEASE TABLETS [Suspect]
     Indication: EPILEPSY
     Dates: start: 20131104, end: 20131203

REACTIONS (2)
  - Convulsion [Recovered/Resolved]
  - Anticonvulsant drug level decreased [Recovered/Resolved]
